FAERS Safety Report 17194594 (Version 1)
Quarter: 2019Q4

REPORT INFORMATION
  Report Type: Other
  Country: TR (occurrence: TR)
  Receive Date: 20191224
  Receipt Date: 20191224
  Transmission Date: 20200122
  Serious: Yes (Hospitalization)
  Sender: FDA-Public Use
  Company Number: TR-ORCHID HEALTHCARE-2078139

PATIENT
  Age: 17 Year
  Sex: Female

DRUGS (1)
  1. MODAFINIL. [Suspect]
     Active Substance: MODAFINIL
     Route: 048

REACTIONS (4)
  - Intentional overdose [Recovered/Resolved]
  - Toxic encephalopathy [Recovered/Resolved]
  - Psychotic disorder [Recovering/Resolving]
  - Akathisia [Recovering/Resolving]
